FAERS Safety Report 8040456-9 (Version None)
Quarter: 2012Q1

REPORT INFORMATION
  Report Type: 
  Country: None (occurrence: None)
  Receive Date: 20120111
  Receipt Date: 20111229
  Transmission Date: 20120608
  Serious: Yes (Death, Other)
  Sender: FDA-Public Use
  Company Number: US-AMGEN-USASP2011047026

PATIENT
  Age: 58 Year
  Sex: Male

DRUGS (2)
  1. ENBREL [Suspect]
     Indication: POLYMYOSITIS
     Dosage: 50 MG, QWK
     Dates: start: 20101101, end: 20101101
  2. METHOTREXATE [Concomitant]

REACTIONS (10)
  - INFLAMMATION [None]
  - INFECTION [None]
  - WHITE BLOOD CELL COUNT DECREASED [None]
  - ARTHRALGIA [None]
  - BOVINE TUBERCULOSIS [None]
  - HYPOKINESIA [None]
  - WEIGHT DECREASED [None]
  - CONTUSION [None]
  - PAIN IN EXTREMITY [None]
  - RASH PRURITIC [None]
